FAERS Safety Report 19684423 (Version 1)
Quarter: 2021Q3

REPORT INFORMATION
  Report Type: Spontaneous
  Country: US (occurrence: US)
  Receive Date: 20210810
  Receipt Date: 20210810
  Transmission Date: 20211014
  Serious: No
  Sender: FDA-Public Use
  Company Number: None

PATIENT
  Sex: Female
  Weight: 60.75 kg

DRUGS (11)
  1. ROSUVASTATIN 10MG [Concomitant]
     Active Substance: ROSUVASTATIN
  2. ESOMEPRAZOLE 20MG [Concomitant]
     Active Substance: ESOMEPRAZOLE
  3. CETIRIZINE [Concomitant]
     Active Substance: CETIRIZINE HYDROCHLORIDE
  4. CALCIUM 1500MG [Concomitant]
  5. VITAMIN D [Concomitant]
     Active Substance: VITAMIN D NOS
  6. PROLIA [Suspect]
     Active Substance: DENOSUMAB
     Indication: OSTEOPOROSIS
     Route: 058
     Dates: start: 20210624
  7. MONTELUKAST SODIUM 10MG [Concomitant]
     Active Substance: MONTELUKAST SODIUM
  8. POLYETHYLENE GLYOCOL [Concomitant]
  9. FLUTICASONE PROPIONATE NASAL INHALATION [Concomitant]
  10. SYMBICORT 80/4.5 INHALER [Concomitant]
  11. MVI [Concomitant]
     Active Substance: VITAMINS

REACTIONS (3)
  - Hypoaesthesia [None]
  - Angioedema [None]
  - Dry mouth [None]
